FAERS Safety Report 18856807 (Version 1)
Quarter: 2021Q1

REPORT INFORMATION
  Report Type: Spontaneous
  Country: US (occurrence: US)
  Receive Date: 20210207
  Receipt Date: 20210207
  Transmission Date: 20210420
  Serious: No
  Sender: FDA-Public Use
  Company Number: US-SA-2021SA036065

PATIENT
  Age: 68 Year
  Sex: Male

DRUGS (1)
  1. DUPIXENT [Suspect]
     Active Substance: DUPILUMAB
     Indication: PSORIASIS
     Dosage: 300 MG, QOW
     Route: 058
     Dates: start: 202011

REACTIONS (4)
  - Vision blurred [Unknown]
  - Pruritus [Unknown]
  - Product use in unapproved indication [Unknown]
  - Eye irritation [Unknown]

NARRATIVE: CASE EVENT DATE: 202011
